FAERS Safety Report 6254205-8 (Version None)
Quarter: 2009Q3

REPORT INFORMATION
  Report Type: 
  Country: None (occurrence: None)
  Receive Date: 20090701
  Receipt Date: 20090701
  Transmission Date: 20100115
  Serious: Yes (Other)
  Sender: FDA-Public Use
  Company Number: None

PATIENT
  Sex: Female

DRUGS (3)
  1. METOPROLOL TARTRATE [Suspect]
     Indication: ARRHYTHMIA
     Dosage: 1/2 TABLET TWICE A DAY
     Dates: start: 20080326
  2. PAXIL [Concomitant]
  3. PREMARIN [Concomitant]

REACTIONS (3)
  - DYSPNOEA [None]
  - HYPERSENSITIVITY [None]
  - URTICARIA [None]
